FAERS Safety Report 9520346 (Version 2)
Quarter: 2013Q4

REPORT INFORMATION
  Report Type: Spontaneous
  Country: US (occurrence: US)
  Receive Date: 20130912
  Receipt Date: 20131127
  Transmission Date: 20140711
  Serious: Yes (Other)
  Sender: FDA-Public Use
  Company Number: US-ALLERGAN-1313579US

PATIENT
  Age: 47 Year
  Sex: Female

DRUGS (2)
  1. BOTOX COSMETIC [Suspect]
     Indication: SKIN WRINKLING
     Dosage: 25 UNITS, SINGLE
     Route: 030
     Dates: start: 20130501, end: 20130501
  2. BOTOX COSMETIC [Suspect]
     Indication: SKIN WRINKLING

REACTIONS (2)
  - Eye swelling [Recovered/Resolved]
  - Urticaria [Recovered/Resolved]
